FAERS Safety Report 4887014-2 (Version None)
Quarter: 2006Q1

REPORT INFORMATION
  Report Type: 
  Country: None (occurrence: None)
  Receive Date: 20060118
  Receipt Date: 20060106
  Transmission Date: 20060701
  Serious: Yes (Other)
  Sender: FDA-Public Use
  Company Number: MEDI-0004028

PATIENT
  Age: 61 Year
  Sex: Female
  Weight: 76.2043 kg

DRUGS (6)
  1. ETHYOL [Suspect]
     Indication: CHEMOTHERAPY
     Dosage: 500 MG, 5 IN 1 WK, SUBCUTANEOUS
     Route: 058
     Dates: start: 20051212, end: 20051222
  2. ETHYOL [Suspect]
     Indication: RADIOTHERAPY
     Dosage: 500 MG, 5 IN 1 WK, SUBCUTANEOUS
     Route: 058
     Dates: start: 20051212, end: 20051222
  3. COMPAZINE [Concomitant]
  4. CLARITIN [Concomitant]
  5. ZYRTEC [Concomitant]
  6. CISPLATIN [Concomitant]

REACTIONS (11)
  - DIARRHOEA [None]
  - INJECTION SITE ERYTHEMA [None]
  - INJURY [None]
  - LETHARGY [None]
  - MALAISE [None]
  - PAIN OF SKIN [None]
  - RASH GENERALISED [None]
  - RASH PAPULAR [None]
  - SKIN BURNING SENSATION [None]
  - SKIN EXFOLIATION [None]
  - SKIN LESION [None]
